FAERS Safety Report 8901651 (Version 1)
Quarter: 2012Q4

REPORT INFORMATION
  Report Type: Spontaneous
  Country: US (occurrence: None)
  Receive Date: 20121031
  Receipt Date: 20121031
  Transmission Date: 20130627
  Serious: Yes (Other)
  Sender: FDA-Public Use
  Company Number: DSA_60207_2012

PATIENT
  Sex: Female

DRUGS (3)
  1. DILTIAZEM [Suspect]
     Indication: HYPERTENSION
  2. ADVIL [Suspect]
     Indication: MUSCLE STRAIN
     Dosage: off and on oral
     Route: 048
  3. ADVIL [Suspect]
     Indication: MUSCLE STRAIN
     Route: 048
     Dates: start: 201209

REACTIONS (1)
  - Hypertension [None]
